FAERS Safety Report 6989452-0 (Version None)
Quarter: 2010Q3

REPORT INFORMATION
  Report Type: 
  Country: None (occurrence: None)
  Receive Date: 20100916
  Receipt Date: 20091209
  Transmission Date: 20110219
  Serious: Yes (Other)
  Sender: FDA-Public Use
  Company Number: US-PFIZER INC-2009291910

PATIENT
  Sex: Female
  Weight: 63.502 kg

DRUGS (7)
  1. LYRICA [Suspect]
     Indication: ARTHRITIS
     Dosage: 75 MG, 2X/DAY
     Route: 048
     Dates: start: 20091029
  2. LYRICA [Suspect]
     Indication: BACK PAIN
  3. LYRICA [Suspect]
     Indication: PAIN
  4. ALEVE (CAPLET) [Concomitant]
     Dosage: UNK
     Route: 048
  5. DEPAKOTE [Concomitant]
     Indication: DEPRESSION
     Dosage: 500 MG, 3X/DAY
     Route: 048
  6. DEPAKOTE [Concomitant]
     Dosage: FREQUENCY: 3X/DAY,
  7. ESTRADIOL [Concomitant]
     Dosage: FREQUENCY: EVERY OTHER DAY,

REACTIONS (4)
  - CHILLS [None]
  - DELIRIUM TREMENS [None]
  - DIZZINESS [None]
  - ORTHOSTATIC HYPOTENSION [None]
